FAERS Safety Report 7450485-1 (Version None)
Quarter: 2011Q2

REPORT INFORMATION
  Report Type: 
  Country: None (occurrence: None)
  Receive Date: 20110502
  Receipt Date: 20110418
  Transmission Date: 20111010
  Serious: Yes (Other)
  Sender: FDA-Public Use
  Company Number: PHHY2011FR27330

PATIENT
  Sex: Male
  Weight: 90 kg

DRUGS (6)
  1. RASILEZ HCT [Suspect]
     Dosage: 1 DF, UNK
     Route: 048
     Dates: start: 20110101
  2. ASPEGIC 325 [Concomitant]
  3. FLECAINE [Concomitant]
     Dosage: 50 MG, UNK
  4. CARDENSIEL [Suspect]
     Dosage: 5 MG, UNK
     Route: 048
     Dates: start: 20101101, end: 20110101
  5. PREVISCAN [Concomitant]
  6. MULTAQ [Suspect]
     Route: 048
     Dates: start: 20101101, end: 20110101

REACTIONS (3)
  - NAUSEA [None]
  - HEPATIC STEATOSIS [None]
  - LIVER DISORDER [None]
